FAERS Safety Report 5163777-6 (Version None)
Quarter: 2006Q4

REPORT INFORMATION
  Report Type: 
  Country: None (occurrence: None)
  Receive Date: 20061127
  Receipt Date: 20061127
  Transmission Date: 20070319
  Serious: Yes (Hospitalization)
  Sender: FDA-Public Use
  Company Number: None

PATIENT
  Age: 72 Year
  Sex: Female
  Weight: 69 kg

DRUGS (2)
  1. HEPARIN [Suspect]
     Indication: ACUTE CORONARY SYNDROME
     Dates: start: 20061103, end: 20061104
  2. HEPARIN [Suspect]
     Indication: CORONARY ARTERY BYPASS
     Dates: start: 20061107, end: 20061107

REACTIONS (1)
  - HEPARIN-INDUCED THROMBOCYTOPENIA [None]
